FAERS Safety Report 11529710 (Version 2)
Quarter: 2015Q4

REPORT INFORMATION
  Report Type: Other
  Country: IT (occurrence: IT)
  Receive Date: 20150921
  Receipt Date: 20151014
  Transmission Date: 20160304
  Serious: Yes (Other)
  Sender: FDA-Public Use
  Company Number: IT-MYLANLABS-2015M1030565

PATIENT

DRUGS (1)
  1. IBUPROFEN LYSINATE [Suspect]
     Active Substance: IBUPROFEN LYSINE
     Indication: PYREXIA
     Dosage: 200 MG TOTAL
     Route: 048
     Dates: start: 20150212, end: 20150212

REACTIONS (2)
  - Anaphylactic reaction [Recovering/Resolving]
  - Medication error [Unknown]

NARRATIVE: CASE EVENT DATE: 20150212
